FAERS Safety Report 6091002-0 (Version None)
Quarter: 2009Q1

REPORT INFORMATION
  Report Type: 
  Country: None (occurrence: None)
  Receive Date: 20090218
  Receipt Date: 20090218
  Transmission Date: 20090719
  Serious: Yes (Hospitalization)
  Sender: FDA-Public Use
  Company Number: None

PATIENT
  Age: 31 Year
  Sex: Female
  Weight: 96.2 kg

DRUGS (2)
  1. GLUCOPHAGE [Suspect]
     Indication: DIABETES MELLITUS
     Dosage: METFOMIN 500 MG BID PO
     Route: 048
  2. . [Concomitant]

REACTIONS (5)
  - ACUTE RESPIRATORY FAILURE [None]
  - COMA [None]
  - HYPERGLYCAEMIA [None]
  - LACTIC ACIDOSIS [None]
  - TREATMENT NONCOMPLIANCE [None]
